FAERS Safety Report 6920078-0 (Version None)
Quarter: 2010Q3

REPORT INFORMATION
  Report Type: 
  Country: None (occurrence: None)
  Receive Date: 20100730
  Receipt Date: 20091228
  Transmission Date: 20110219
  Serious: Yes (Life-Threatening, Hospitalization)
  Sender: FDA-Public Use
  Company Number: OMPQ-PR-0912S-1053

PATIENT
  Age: 73 Year
  Sex: Female
  Weight: 68.0396 kg

DRUGS (1)
  1. OMNIPAQUE 140 [Suspect]
     Indication: ABDOMINAL PAIN
     Dosage: 150 ML, SINGLE DOSE, I.V.
     Route: 042
     Dates: start: 20091224, end: 20091224

REACTIONS (5)
  - ANAPHYLACTOID REACTION [None]
  - CHEST PAIN [None]
  - HYPOTENSION [None]
  - PULSE ABNORMAL [None]
  - PULSE PRESSURE DECREASED [None]
